FAERS Safety Report 21218587 (Version 1)
Quarter: 2022Q3

REPORT INFORMATION
  Report Type: Spontaneous
  Country: US (occurrence: None)
  Receive Date: 20220816
  Receipt Date: 20220816
  Transmission Date: 20221026
  Serious: Yes (Other)
  Sender: FDA-Public Use
  Company Number: None

PATIENT
  Age: 73 Year
  Sex: Male

DRUGS (7)
  1. LOKELMA [Suspect]
     Active Substance: SODIUM ZIRCONIUM CYCLOSILICATE
     Indication: Product used for unknown indication
     Dosage: FREQUENCY : EVERY OTHER WEEK;?
     Route: 048
     Dates: start: 20220802, end: 20220809
  2. AMLODIPINE BESYLATE [Concomitant]
     Active Substance: AMLODIPINE BESYLATE
  3. COLCHICINE 0.6 MG [Concomitant]
  4. FISH OIL 1000 MG [Concomitant]
  5. LOVASTATIN [Concomitant]
     Active Substance: LOVASTATIN
  6. METOPROLOL TARTRATE [Concomitant]
     Active Substance: METOPROLOL TARTRATE
  7. TRELEGY 100-62.5 MCG [Concomitant]

REACTIONS (4)
  - Nausea [None]
  - Vomiting [None]
  - Micturition disorder [None]
  - Abdominal distension [None]

NARRATIVE: CASE EVENT DATE: 20220809
